FAERS Safety Report 6108655-0 (Version None)
Quarter: 2009Q1

REPORT INFORMATION
  Report Type: 
  Country: None (occurrence: None)
  Receive Date: 20090305
  Receipt Date: 20090217
  Transmission Date: 20090719
  Serious: Yes (Death)
  Sender: FDA-Public Use
  Company Number: DSA_33282_2009

PATIENT
  Sex: Female

DRUGS (7)
  1. DILZENE           (DILZENE - DILTIAZEM HYDROCHLORIDE) (NOT SPECIFIED) [Suspect]
     Indication: DRUG USE FOR UNKNOWN INDICATION
     Dosage: (180 MG QD ORAL)
     Route: 048
     Dates: start: 20080101
  2. METFORMIN HCL [Suspect]
     Indication: DRUG USE FOR UNKNOWN INDICATION
     Dosage: (3 G QD ORAL)
     Route: 048
     Dates: start: 20080101
  3. GLYBURIDE [Concomitant]
  4. ASPIRIN [Concomitant]
  5. SEROQUEL [Concomitant]
  6. LASIX [Concomitant]
  7. LANSOPRAZOLE [Concomitant]

REACTIONS (10)
  - ACIDOSIS [None]
  - BRADYARRHYTHMIA [None]
  - CHOLECYSTITIS ACUTE [None]
  - CHOLELITHIASIS [None]
  - COMA [None]
  - DIALYSIS [None]
  - HYPOTENSION [None]
  - RED BLOOD CELL COUNT DECREASED [None]
  - SEPSIS [None]
  - SHOCK [None]
